FAERS Safety Report 11155837 (Version 1)
Quarter: 2015Q2

REPORT INFORMATION
  Report Type: Spontaneous
  Country: US (occurrence: None)
  Receive Date: 20150601
  Receipt Date: 20150601
  Transmission Date: 20150821
  Serious: Yes (Disabling)
  Sender: FDA-Public Use
  Company Number: None

PATIENT
  Age: 68 Year
  Sex: Female
  Weight: 81.65 kg

DRUGS (17)
  1. GEMFIBROZIL 600 MG [Suspect]
     Active Substance: GEMFIBROZIL
     Indication: BLOOD TRIGLYCERIDES ABNORMAL
     Dosage: 600 MG, TWICE A DAY, TWICE A DAY, BY MOUTH
     Route: 048
     Dates: start: 20150506, end: 20150514
  2. DULCOLAX [Concomitant]
     Active Substance: BISACODYL OR DOCUSATE SODIUM
  3. NASAL SPRAY [Concomitant]
     Active Substance: UNSPECIFIED INGREDIENT
  4. MUCINEX [Concomitant]
     Active Substance: GUAIFENESIN
  5. KRILL OIL [Concomitant]
     Active Substance: DIETARY SUPPLEMENT
  6. ANTIHISTAMINE 25 [Concomitant]
  7. 81 ASPIRIN [Concomitant]
  8. LISINOPRIL. [Concomitant]
     Active Substance: LISINOPRIL
  9. AMITRIPTYLINE [Concomitant]
     Active Substance: AMITRIPTYLINE
  10. METOPROLOL [Concomitant]
     Active Substance: METOPROLOL
  11. THERMA CARE HEAT WRAPS [Concomitant]
  12. OMEPRAZOLE. [Concomitant]
     Active Substance: OMEPRAZOLE
  13. GEMFIBROZIL 600 MG [Suspect]
     Active Substance: GEMFIBROZIL
     Indication: BLOOD CHOLESTEROL ABNORMAL
     Dosage: 600 MG, TWICE A DAY, TWICE A DAY, BY MOUTH
     Route: 048
     Dates: start: 20150506, end: 20150514
  14. D3 5K [Concomitant]
  15. ALPRAZOLAM. [Concomitant]
     Active Substance: ALPRAZOLAM
  16. HYDROCO/APAP [Concomitant]
     Active Substance: ACETAMINOPHEN\HYDROCODONE
  17. FOCUS FACTOR [Concomitant]

REACTIONS (10)
  - Eye pain [None]
  - Muscle disorder [None]
  - Activities of daily living impaired [None]
  - Pain in extremity [None]
  - Synovial cyst [None]
  - Pain [None]
  - Dementia [None]
  - Trigger finger [None]
  - Pruritus generalised [None]
  - Speech disorder [None]

NARRATIVE: CASE EVENT DATE: 20150510
